FAERS Safety Report 7386327-2 (Version None)
Quarter: 2011Q1

REPORT INFORMATION
  Report Type: 
  Country: None (occurrence: None)
  Receive Date: 20110331
  Receipt Date: 20110318
  Transmission Date: 20110831
  Serious: Yes (Other)
  Sender: FDA-Public Use
  Company Number: PHHY2011US22768

PATIENT
  Age: 76 Year
  Sex: Female

DRUGS (12)
  1. FUROSEMIDE [Concomitant]
  2. AMLODIPINE BESYLATE [Concomitant]
     Dosage: UNK
  3. CITRACAL + D [Concomitant]
  4. ACTOPLUS MET [Concomitant]
  5. ACTONEL [Concomitant]
  6. ALTACE [Concomitant]
  7. ASPIRIN [Concomitant]
  8. FLEX OMEGA BENEFITS [Concomitant]
     Dosage: UNK
  9. GENTEAL [Suspect]
     Dosage: 1 GTT, QD
  10. ZOCOR [Concomitant]
     Dosage: UNK
  11. ATIVAN [Concomitant]
  12. CENTRUM SILVER [Concomitant]

REACTIONS (1)
  - DEVICE DISLOCATION [None]
